FAERS Safety Report 17025065 (Version 1)
Quarter: 2019Q4

REPORT INFORMATION
  Report Type: Spontaneous
  Country: US (occurrence: US)
  Receive Date: 20191008
  Receipt Date: 20191008
  Transmission Date: 20200122
  Serious: Yes (Hospitalization)
  Sender: FDA-Public Use
  Company Number: None

PATIENT
  Age: 32 Year
  Sex: Male
  Weight: 159.9 kg

DRUGS (1)
  1. YESCARTA [Suspect]
     Active Substance: AXICABTAGENE CILOLEUCEL
     Route: 042
     Dates: start: 20190917

REACTIONS (6)
  - Head discomfort [None]
  - Tremor [None]
  - Myalgia [None]
  - Acute kidney injury [None]
  - Muscular weakness [None]
  - Cytokine release syndrome [None]

NARRATIVE: CASE EVENT DATE: 20190922
